FAERS Safety Report 21016060 (Version 2)
Quarter: 2022Q3

REPORT INFORMATION
  Report Type: Spontaneous
  Country: PE (occurrence: PE)
  Receive Date: 20220628
  Receipt Date: 20220808
  Transmission Date: 20221027
  Serious: Yes (Other)
  Sender: FDA-Public Use
  Company Number: UY-BoehringerIngelheim-2022-BI-177578

PATIENT
  Age: 20 Year
  Sex: Male
  Weight: 90 kg

DRUGS (3)
  1. JARDIANCE [Suspect]
     Active Substance: EMPAGLIFLOZIN
     Indication: Type 1 diabetes mellitus
     Route: 048
     Dates: start: 202006, end: 20220605
  2. INSULIN NOS [Concomitant]
     Active Substance: INSULIN NOS
     Indication: Type 1 diabetes mellitus
     Dosage: PATIENT USES CONTINUOUS INFUSION INSULIN PUMP ^MINIMED 640^ (MEDTRONIC) WITH INTEGRATED MONITORING D
  3. INSULIN NOS [Concomitant]
     Active Substance: INSULIN NOS
     Dosage: PATIENT SELF-REDUCED THE DOSE OF HIS PUMP AND PHYSICIAN RAISED IT TO 20% (04JUN2022): 64.1 IU, 49% B
     Dates: start: 20220604

REACTIONS (3)
  - Euglycaemic diabetic ketoacidosis [Recovered/Resolved]
  - Postprandial hypoglycaemia [Unknown]
  - Off label use [Recovered/Resolved]

NARRATIVE: CASE EVENT DATE: 20200601
